FAERS Safety Report 13854003 (Version 1)
Quarter: 2017Q3

REPORT INFORMATION
  Report Type: Spontaneous
  Country: FR (occurrence: FR)
  Receive Date: 20170809
  Receipt Date: 20170809
  Transmission Date: 20171127
  Serious: Yes (Other)
  Sender: FDA-Public Use
  Company Number: FR-ELI_LILLY_AND_COMPANY-FR201707012578

PATIENT
  Age: 31 Year
  Sex: Female

DRUGS (1)
  1. TALTZ [Suspect]
     Active Substance: IXEKIZUMAB
     Indication: PSORIASIS
     Dosage: 160 MG (2 DOSAGE FORMS), SINGLE
     Route: 058
     Dates: start: 20170517, end: 20170517

REACTIONS (4)
  - Injection site rash [Recovering/Resolving]
  - Injection site reaction [Recovering/Resolving]
  - Koebner phenomenon [Recovering/Resolving]
  - Injection site pain [Recovering/Resolving]

NARRATIVE: CASE EVENT DATE: 20170524
